FAERS Safety Report 7320871-9 (Version None)
Quarter: 2011Q1

REPORT INFORMATION
  Report Type: 
  Country: None (occurrence: None)
  Receive Date: 20110223
  Receipt Date: 20110223
  Transmission Date: 20110831
  Serious: Yes (Life-Threatening)
  Sender: FDA-Public Use
  Company Number: None

PATIENT
  Age: 54 Year
  Sex: Male
  Weight: 102.9665 kg

DRUGS (1)
  1. LISINOPRIL [Suspect]
     Indication: ACUTE PRERENAL FAILURE
     Dosage: 40 MG DAILY PO
     Route: 048

REACTIONS (4)
  - ABDOMINAL PAIN [None]
  - NAUSEA [None]
  - BLOOD POTASSIUM INCREASED [None]
  - VOMITING [None]
